FAERS Safety Report 5794921-5 (Version None)
Quarter: 2008Q2

REPORT INFORMATION
  Report Type: 
  Country: None (occurrence: None)
  Receive Date: 20080630
  Receipt Date: 20080624
  Transmission Date: 20081010
  Serious: Yes (Death)
  Sender: FDA-Public Use
  Company Number: US-PURDUE-USA_2008_0033669

PATIENT
  Age: 37 Year
  Sex: Female

DRUGS (1)
  1. OXYCONTIN [Suspect]
     Indication: CANCER PAIN
     Dosage: UNK UNK, UNK
     Route: 065

REACTIONS (1)
  - MALIGNANT NEOPLASM PROGRESSION [None]
